FAERS Safety Report 7191172-7 (Version None)
Quarter: 2010Q4

REPORT INFORMATION
  Report Type: 
  Country: None (occurrence: None)
  Receive Date: 20101223
  Receipt Date: 20100811
  Transmission Date: 20110411
  Serious: No
  Sender: FDA-Public Use
  Company Number: US-AMGEN-TCS431027

PATIENT

DRUGS (2)
  1. ENBREL [Suspect]
     Indication: PRODUCT USED FOR UNKNOWN INDICATION
     Dosage: UNK UNK, UNK
  2. SULFASALAZINE [Concomitant]

REACTIONS (3)
  - ANKYLOSING SPONDYLITIS [None]
  - STRESS [None]
  - THERAPEUTIC RESPONSE DECREASED [None]
